FAERS Safety Report 16744953 (Version 1)
Quarter: 2019Q3

REPORT INFORMATION
  Report Type: Report from Study
  Country: IT (occurrence: IT)
  Receive Date: 20190827
  Receipt Date: 20190827
  Transmission Date: 20191005
  Serious: Yes (Other)
  Sender: FDA-Public Use
  Company Number: IT-TEVA-2019-IT-1096491

PATIENT
  Age: 54 Year
  Sex: Male

DRUGS (1)
  1. AMOXICILLIN SODIUM [Suspect]
     Active Substance: AMOXICILLIN SODIUM
     Indication: ANTIBIOTIC THERAPY
     Route: 048
     Dates: start: 20190731, end: 20190731

REACTIONS (2)
  - Rash pruritic [Recovering/Resolving]
  - Rash generalised [Recovering/Resolving]

NARRATIVE: CASE EVENT DATE: 20190731
